FAERS Safety Report 10418455 (Version 1)
Quarter: 2014Q3

REPORT INFORMATION
  Report Type: Spontaneous
  Country: US (occurrence: US)
  Receive Date: 20140829
  Receipt Date: 20140829
  Transmission Date: 20150326
  Serious: No
  Sender: FDA-Public Use
  Company Number: US-VIIV HEALTHCARE LIMITED-A1045270A

PATIENT

DRUGS (4)
  1. KIVEXA [Suspect]
     Active Substance: ABACAVIR SULFATE\LAMIVUDINE
     Indication: PRODUCT USED FOR UNKNOWN INDICATION
     Route: 065
  2. ATAZANAVIR [Concomitant]
     Active Substance: ATAZANAVIR
  3. RITONAVIR [Concomitant]
     Active Substance: RITONAVIR
  4. SUSTIVA [Concomitant]
     Active Substance: EFAVIRENZ

REACTIONS (3)
  - Amnesia [Unknown]
  - Anxiety [Unknown]
  - Paraesthesia [Unknown]
